FAERS Safety Report 7177172-1 (Version None)
Quarter: 2010Q4

REPORT INFORMATION
  Report Type: 
  Country: None (occurrence: None)
  Receive Date: 20101207
  Receipt Date: 20101122
  Transmission Date: 20110411
  Serious: Yes (Hospitalization)
  Sender: FDA-Public Use
  Company Number: PHHY2010JP52835

PATIENT
  Age: 88 Year
  Sex: Female
  Weight: 45 kg

DRUGS (6)
  1. TERNELIN (TIZANIDINE HYDROCHLORIDE) UNKNOWN, 3 MG [Suspect]
     Indication: SPINAL OSTEOARTHRITIS
     Dosage: 1 MG, TID, ORAL
     Route: 048
     Dates: start: 20100218, end: 20100805
  2. LIVALO KOWA (ITAVASTATIN CALCIUM) [Concomitant]
  3. LEVOTHYROXINE SODIUM [Concomitant]
  4. ALTAT (ROXATIDINE ACETATE HYDROCHLORIDE) [Concomitant]
  5. ASPIRIN [Concomitant]
  6. NI-LOTAN (LOSARTAN POTASSIUM) [Concomitant]

REACTIONS (8)
  - ALANINE AMINOTRANSFERASE INCREASED [None]
  - ASPARTATE AMINOTRANSFERASE INCREASED [None]
  - BLOOD LACTATE DEHYDROGENASE INCREASED [None]
  - BLOOD PRESSURE DECREASED [None]
  - DECREASED APPETITE [None]
  - GAMMA-GLUTAMYLTRANSFERASE INCREASED [None]
  - HEPATIC FUNCTION ABNORMAL [None]
  - MALAISE [None]
